FAERS Safety Report 8975872 (Version 2)
Quarter: 2013Q1

REPORT INFORMATION
  Report Type: Spontaneous
  Country: US (occurrence: US)
  Receive Date: 20121219
  Receipt Date: 20130108
  Transmission Date: 20140127
  Serious: Yes (Hospitalization)
  Sender: FDA-Public Use
  Company Number: CHPA2012US025052

PATIENT
  Age: 84 Year
  Sex: Female

DRUGS (1)
  1. EXCEDRIN MIGRAINE [Suspect]
     Indication: MIGRAINE
     Dosage: UNK, UNK
     Route: 048

REACTIONS (4)
  - Coma [Recovered/Resolved]
  - Myocardial infarction [Recovered/Resolved]
  - Drug screen positive [Recovered/Resolved]
  - Underdose [Unknown]
